FAERS Safety Report 6159288-1 (Version None)
Quarter: 2009Q2

REPORT INFORMATION
  Report Type: 
  Country: None (occurrence: None)
  Receive Date: 20090417
  Receipt Date: 20090414
  Transmission Date: 20091009
  Serious: Yes (Other)
  Sender: FDA-Public Use
  Company Number: PHEH2008US02539

PATIENT
  Sex: Male

DRUGS (6)
  1. AREDIA [Suspect]
     Dosage: 90MG
  2. ZOMETA [Suspect]
  3. AMOXICILLIN [Concomitant]
  4. VINCRISTINE [Concomitant]
  5. ADRIAMYCIN RDF [Concomitant]
  6. DEXAMETHASONE [Concomitant]

REACTIONS (22)
  - ANXIETY [None]
  - ARTIFICIAL CROWN PROCEDURE [None]
  - ASPERGILLOSIS [None]
  - CARDIAC FAILURE CONGESTIVE [None]
  - DEBRIDEMENT [None]
  - DENTAL CARIES [None]
  - DENTAL OPERATION [None]
  - DISCOMFORT [None]
  - GENERAL PHYSICAL HEALTH DETERIORATION [None]
  - GINGIVAL RECESSION [None]
  - INFECTION [None]
  - MASTICATION DISORDER [None]
  - OSTEONECROSIS [None]
  - OSTEOPENIA [None]
  - OSTEOPOROSIS [None]
  - PAIN [None]
  - PERIODONTAL OPERATION [None]
  - RENAL FAILURE [None]
  - SCAR [None]
  - TOOTH DISORDER [None]
  - TOOTH EXTRACTION [None]
  - TOOTH LOSS [None]
